FAERS Safety Report 15347731 (Version 1)
Quarter: 2018Q4

REPORT INFORMATION
  Report Type: Spontaneous
  Country: CH (occurrence: CH)
  Receive Date: 20180904
  Receipt Date: 20180904
  Transmission Date: 20190204
  Serious: Yes (Hospitalization)
  Sender: FDA-Public Use
  Company Number: CH-PFIZER INC-2018349244

PATIENT
  Age: 64 Year
  Sex: Female
  Weight: 63.3 kg

DRUGS (12)
  1. VALVERDE [FICUS CARICA FR1 UIT;SENNA ALEXANDRINA FRUIT;SENNOSIDE B] [Suspect]
     Active Substance: SENNOSIDE B
     Dosage: 1 DF, 1X/DAY, THERAPY START DATE UNKNOWN
     Dates: end: 20180807
  2. ZOLDORM [Concomitant]
     Active Substance: ZOLPIDEM TARTRATE
     Dosage: 5 MG, 1X/DAY
     Route: 048
  3. MUXOL [BISACODYL] [Concomitant]
     Dosage: 20 MG, 1X/DAY
     Route: 048
  4. ARLEVERT [Concomitant]
     Active Substance: CINNARIZINE\DIMENHYDRINATE
     Dosage: 1 DF, 3X/DAY
     Route: 048
  5. DIGOXIN. [Concomitant]
     Active Substance: DIGOXIN
     Dosage: 0.125 MG, 1X/DAY
     Route: 048
  6. TORASEMID SANDOZ ECO [Concomitant]
     Active Substance: TORSEMIDE
     Dosage: 15 MG, 1X/DAY
     Route: 048
  7. PREGABALIN PFIZER [Suspect]
     Active Substance: PREGABALIN
     Dosage: 75 MG, 2X/DAY, EXACT DATE OF THERAPY NOT KNOWN, RECENT DOSE INCREASE (JUN2018)
     Route: 048
     Dates: end: 20180807
  8. RISPERDAL [Suspect]
     Active Substance: RISPERIDONE
     Dosage: 1 MG, 3X/DAY, START DATE OF THERAPY UNKNOWN, REDUCED DOSAGE AT DISCHARGE (1 MG/DAY)
     Route: 048
  9. XENALON [Suspect]
     Active Substance: SPIRONOLACTONE
     Dosage: 100 MG, 1X/DAY,  THERAPY START DATE UNKNOWN
     Route: 048
     Dates: end: 20180708
  10. KETALGINE [Concomitant]
     Dosage: 5 MG, 3X/DAY
     Route: 048
  11. QUETIAPIN SANDOZ [Suspect]
     Active Substance: QUETIAPINE
     Dosage: 25 MG, 3X/DAY
     Route: 048
     Dates: start: 201806, end: 20180807
  12. LAXOBERON [Concomitant]
     Active Substance: SODIUM PICOSULFATE
     Dosage: 12 GTT, 1X/DAY
     Route: 048

REACTIONS (4)
  - Hepatocellular injury [Recovering/Resolving]
  - Hypotension [Recovering/Resolving]
  - Altered state of consciousness [Recovering/Resolving]
  - Somnolence [Recovering/Resolving]

NARRATIVE: CASE EVENT DATE: 20180807
